FAERS Safety Report 14775950 (Version 2)
Quarter: 2018Q2

REPORT INFORMATION
  Report Type: Spontaneous
  Country: US (occurrence: US)
  Receive Date: 20180418
  Receipt Date: 20180515
  Transmission Date: 20180711
  Serious: No
  Sender: FDA-Public Use
  Company Number: US-ASTRAZENECA-2018SE43346

PATIENT
  Sex: Female
  Weight: 64.9 kg

DRUGS (3)
  1. BYDUREON BCISE [Suspect]
     Active Substance: EXENATIDE
     Indication: TYPE 2 DIABETES MELLITUS
     Dosage: 4 COUNT ONCE A WEEK
     Route: 058
     Dates: start: 201802
  2. BYDUREON [Suspect]
     Active Substance: EXENATIDE
     Route: 065
  3. TRESIBA [Concomitant]
     Active Substance: INSULIN DEGLUDEC
     Indication: TYPE 2 DIABETES MELLITUS
     Dosage: 50 DAILY
     Route: 058
     Dates: start: 2015

REACTIONS (5)
  - Needle issue [Unknown]
  - Injection site mass [Recovering/Resolving]
  - Weight decreased [Unknown]
  - Underdose [Unknown]
  - Injection site extravasation [Unknown]
